FAERS Safety Report 15001610 (Version 2)
Quarter: 2018Q2

REPORT INFORMATION
  Report Type: Spontaneous
  Country: ZA (occurrence: ZA)
  Receive Date: 20180612
  Receipt Date: 20180619
  Transmission Date: 20180711
  Serious: Yes (Hospitalization, Other)
  Sender: FDA-Public Use
  Company Number: ZA-PFIZER INC-2018232757

PATIENT
  Age: 64 Year
  Sex: Female

DRUGS (5)
  1. DEPO-MEDROL [Suspect]
     Active Substance: METHYLPREDNISOLONE ACETATE
     Dosage: UNK
     Dates: start: 201805
  2. LP299V [Concomitant]
     Dosage: UNK
  3. CALTRATE WITH VITAMIN D [Concomitant]
     Active Substance: CALCIUM CARBONATE\CHOLECALCIFEROL
     Dosage: UNK
  4. XET [Concomitant]
     Active Substance: PAROXETINE HYDROCHLORIDE
     Indication: DEPRESSION
  5. ARCOXIA [Concomitant]
     Active Substance: ETORICOXIB
     Dosage: 1 DF, EVERY 3RD DAY

REACTIONS (2)
  - Pulse absent [Recovered/Resolved]
  - Anaphylactic shock [Recovered/Resolved]
